FAERS Safety Report 9470934 (Version 1)
Quarter: 2013Q3

REPORT INFORMATION
  Report Type: Spontaneous
  Country: US (occurrence: None)
  Receive Date: 20130820
  Receipt Date: 20130820
  Transmission Date: 20140515
  Serious: Yes (Other)
  Sender: FDA-Public Use
  Company Number: None

PATIENT
  Sex: Female

DRUGS (1)
  1. LYRICA [Suspect]
     Indication: AMNESIA

REACTIONS (4)
  - Fall [None]
  - Pain [None]
  - Abasia [None]
  - Nervous system disorder [None]
